FAERS Safety Report 23428111 (Version 1)
Quarter: 2024Q1

REPORT INFORMATION
  Report Type: Spontaneous
  Country: US (occurrence: None)
  Receive Date: 20240120
  Receipt Date: 20240120
  Transmission Date: 20240409
  Serious: Yes (Hospitalization)
  Sender: FDA-Public Use
  Company Number: None

PATIENT
  Age: 41 Year
  Sex: Female
  Weight: 81.6 kg

DRUGS (7)
  1. CYCLOPHOSPHAMIDE [Suspect]
     Active Substance: CYCLOPHOSPHAMIDE
     Dates: end: 20160801
  2. CYTARABINE [Suspect]
     Active Substance: CYTARABINE
     Dates: end: 20160811
  3. DAUNORUBICIN [Suspect]
     Active Substance: DAUNORUBICIN
     Dates: end: 20160718
  4. DEXAMETHASONE [Suspect]
     Active Substance: DEXAMETHASONE
     Dates: end: 20160710
  5. MERCAPTOPURINE [Suspect]
     Active Substance: MERCAPTOPURINE
     Dates: end: 20160814
  6. METHOTREXATE [Suspect]
     Active Substance: METHOTREXATE
     Dates: end: 20160815
  7. VINCRISTINE SULFATE [Suspect]
     Active Substance: VINCRISTINE SULFATE
     Dates: end: 20160718

REACTIONS (8)
  - Nausea [None]
  - Diarrhoea [None]
  - Platelet count decreased [None]
  - Febrile neutropenia [None]
  - Bacteraemia [None]
  - Vascular access device culture positive [None]
  - Klebsiella infection [None]
  - Chills [None]

NARRATIVE: CASE EVENT DATE: 20160822
